FAERS Safety Report 15280342 (Version 1)
Quarter: 2018Q3

REPORT INFORMATION
  Report Type: Spontaneous
  Country: FR (occurrence: FR)
  Receive Date: 20180815
  Receipt Date: 20180815
  Transmission Date: 20181010
  Serious: Yes (Hospitalization)
  Sender: FDA-Public Use
  Company Number: FR-PFIZER INC-2018320470

PATIENT
  Age: 76 Year
  Sex: Male

DRUGS (2)
  1. INSPRA [Suspect]
     Active Substance: EPLERENONE
     Indication: CARDIOVASCULAR DISORDER
     Dosage: 50 MG, 1X/DAY
     Route: 048
     Dates: end: 20151019
  2. DUPHALAC [Suspect]
     Active Substance: LACTULOSE
     Indication: ASCITES
     Dosage: 3 DF, 1X/DAY
     Route: 048
     Dates: end: 20151019

REACTIONS (2)
  - Acute kidney injury [Recovering/Resolving]
  - Diarrhoea [Recovering/Resolving]

NARRATIVE: CASE EVENT DATE: 201510
